FAERS Safety Report 10537491 (Version 3)
Quarter: 2014Q4

REPORT INFORMATION
  Report Type: Spontaneous
  Country: US (occurrence: None)
  Receive Date: 20141021
  Receipt Date: 20141113
  Transmission Date: 20150529
  Serious: Yes (Hospitalization, Other)
  Sender: FDA-Public Use
  Company Number: 2014-US-013283

PATIENT
  Age: 61 Year
  Sex: Female

DRUGS (1)
  1. XYREM [Suspect]
     Active Substance: SODIUM OXYBATE
     Indication: FIBROMYALGIA
     Route: 048
     Dates: start: 200609, end: 200610

REACTIONS (6)
  - Nephrolithiasis [None]
  - Fall [None]
  - Renal cancer [None]
  - Ankle fracture [None]
  - Off label use [None]
  - Osteoarthritis [None]

NARRATIVE: CASE EVENT DATE: 20140929
